FAERS Safety Report 10323296 (Version 2)
Quarter: 2015Q1

REPORT INFORMATION
  Report Type: Other
  Country: US (occurrence: US)
  Receive Date: 20140720
  Receipt Date: 20150323
  Transmission Date: 20150720
  Serious: Yes (Hospitalization, Other)
  Sender: FDA-Public Use
  Company Number: US-GSKPPD-2014GSK020723

PATIENT
  Age: 53 Year
  Sex: Female

DRUGS (8)
  1. LASIX [Concomitant]
     Active Substance: FUROSEMIDE
  2. ALDACTONE [Concomitant]
     Active Substance: SPIRONOLACTONE
  3. LOVASTATIN. [Concomitant]
     Active Substance: LOVASTATIN
  4. AVANDIA [Suspect]
     Active Substance: ROSIGLITAZONE MALEATE
     Indication: DIABETES MELLITUS
     Dosage: AVANDIA WAS NOT LISTED AMONG THE PATIENTS RECORDS REVIEWED.
     Route: 048
  5. COREG [Concomitant]
     Active Substance: CARVEDILOL
  6. COUMADIN [Concomitant]
     Active Substance: WARFARIN SODIUM
  7. ASPIRIN. [Concomitant]
     Active Substance: ASPIRIN
  8. ZESTRIL [Concomitant]
     Active Substance: LISINOPRIL

REACTIONS (1)
  - Cardiac failure congestive [Recovered/Resolved]

NARRATIVE: CASE EVENT DATE: 20060330
